FAERS Safety Report 7718481-4 (Version None)
Quarter: 2011Q3

REPORT INFORMATION
  Report Type: 
  Country: None (occurrence: None)
  Receive Date: 20110830
  Receipt Date: 20110819
  Transmission Date: 20111222
  Serious: Yes (Hospitalization)
  Sender: FDA-Public Use
  Company Number: CA-JNJFOC-20101003370

PATIENT
  Sex: Female

DRUGS (4)
  1. REMICADE [Suspect]
     Route: 042
     Dates: start: 20100816, end: 20100901
  2. IMURAN [Concomitant]
  3. REMICADE [Suspect]
     Indication: CROHN'S DISEASE
     Route: 042
     Dates: start: 20100706
  4. PREDNISONE [Concomitant]

REACTIONS (3)
  - INTESTINAL OBSTRUCTION [None]
  - INTESTINAL FISTULA INFECTION [None]
  - INTESTINAL RESECTION [None]
